FAERS Safety Report 4407075-4 (Version None)
Quarter: 2004Q3

REPORT INFORMATION
  Report Type: 
  Country: None (occurrence: None)
  Receive Date: 20040723
  Receipt Date: 20040723
  Transmission Date: 20050211
  Serious: Yes (Hospitalization)
  Sender: FDA-Public Use
  Company Number: None

PATIENT
  Age: 61 Year
  Sex: Male
  Weight: 78 kg

DRUGS (9)
  1. GEMCITABINE [Suspect]
     Indication: PANCREATIC CARCINOMA
     Dosage: 1000 MG/M2 WEEKLY IV
     Route: 042
     Dates: start: 20040706
  2. MS CONTIN [Concomitant]
  3. DOCUSATE [Concomitant]
  4. ATIVAN [Concomitant]
  5. COMPAZINE [Concomitant]
  6. PLAVIX [Concomitant]
  7. ZOCOR [Concomitant]
  8. HUMALOG 75/25-30 INSULIN [Concomitant]
  9. COUMADIN [Concomitant]

REACTIONS (2)
  - DIABETIC KETOACIDOSIS [None]
  - TREATMENT NONCOMPLIANCE [None]
